FAERS Safety Report 9116471 (Version 2)
Quarter: 2013Q1

REPORT INFORMATION
  Report Type: Report from Study
  Country: FR (occurrence: FR)
  Receive Date: 20130225
  Receipt Date: 20130227
  Transmission Date: 20140127
  Serious: Yes (Hospitalization, Other)
  Sender: FDA-Public Use
  Company Number: FR-ROCHE-1172071

PATIENT
  Age: 56 Year
  Sex: Female
  Weight: 37 kg

DRUGS (1)
  1. BEVACIZUMAB [Suspect]
     Indication: LUNG NEOPLASM MALIGNANT
     Route: 042
     Dates: start: 20101023, end: 20110805

REACTIONS (1)
  - General physical health deterioration [Not Recovered/Not Resolved]
